FAERS Safety Report 26127201 (Version 2)
Quarter: 2025Q4

REPORT INFORMATION
  Report Type: Report from Study
  Country: US (occurrence: EU)
  Receive Date: 20251205
  Receipt Date: 20251217
  Transmission Date: 20260118
  Serious: Yes (Hospitalization)
  Sender: ABBVIE
  Company Number: EU-ABBVIE-6575215

PATIENT
  Age: 2 Year

DRUGS (10)
  1. RINVOQ [Suspect]
     Active Substance: UPADACITINIB
     Indication: Colitis ulcerative
     Route: 048
  2. RINVOQ [Suspect]
     Active Substance: UPADACITINIB
     Indication: Autoimmune cholangitis
     Dosage: DISCONTINUED IN 2025
     Route: 048
     Dates: start: 20250922, end: 20251017
  3. ENOXAPARIN [Concomitant]
     Active Substance: ENOXAPARIN
     Indication: Product used for unknown indication
  4. PREDNISONE [Concomitant]
     Active Substance: PREDNISONE
     Indication: Product used for unknown indication
  5. URSODIOL [Concomitant]
     Active Substance: URSODIOL
     Indication: Product used for unknown indication
     Dosage: TIME INTERVAL: 0.33333333 DAYS
  6. CHOLECALCIFEROL [Concomitant]
     Active Substance: CHOLECALCIFEROL
     Indication: Product used for unknown indication
  7. ESOMEPRAZOLE [Concomitant]
     Active Substance: ESOMEPRAZOLE
     Indication: Product used for unknown indication
  8. AMLODIPINE [Concomitant]
     Active Substance: AMLODIPINE BESYLATE
     Indication: Product used for unknown indication
  9. PROPRANOLOL [Concomitant]
     Active Substance: PROPRANOLOL HYDROCHLORIDE
     Indication: Product used for unknown indication
  10. COTRIMOXAZOLE [Concomitant]
     Active Substance: SULFAMETHOXAZOLE\TRIMETHOPRIM
     Indication: Product used for unknown indication

REACTIONS (9)
  - Rectal haemorrhage [Unknown]
  - Red blood cell sedimentation rate abnormal [Unknown]
  - Diarrhoea haemorrhagic [Unknown]
  - Gamma-glutamyltransferase increased [Recovering/Resolving]
  - Transaminases increased [Recovering/Resolving]
  - Rectal haemorrhage [Unknown]
  - Abnormal faeces [Unknown]
  - Haematochezia [Unknown]
  - Viral infection [Recovering/Resolving]

NARRATIVE: CASE EVENT DATE: 20250101
